FAERS Safety Report 8017721-4 (Version None)
Quarter: 2012Q1

REPORT INFORMATION
  Report Type: 
  Country: None (occurrence: None)
  Receive Date: 20120103
  Receipt Date: 20111228
  Transmission Date: 20120608
  Serious: No
  Sender: FDA-Public Use
  Company Number: US-PFIZER INC-2011315376

PATIENT
  Sex: Female
  Weight: 47 kg

DRUGS (1)
  1. ADVIL CONGESTION RELIEF [Suspect]
     Indication: SINUS HEADACHE
     Dosage: 200/10 MG, UNK
     Route: 048
     Dates: start: 20111228

REACTIONS (1)
  - DRUG INEFFECTIVE [None]
